FAERS Safety Report 5961865-5 (Version None)
Quarter: 2008Q4

REPORT INFORMATION
  Report Type: 
  Country: None (occurrence: None)
  Receive Date: 20081121
  Receipt Date: 20080523
  Transmission Date: 20090506
  Serious: No
  Sender: FDA-Public Use
  Company Number: US-BRISTOL-MYERS SQUIBB COMPANY-14206890

PATIENT
  Sex: Female

DRUGS (6)
  1. AVALIDE [Suspect]
  2. TOPROL-XL [Suspect]
  3. TRICOR [Suspect]
  4. VYTORIN [Suspect]
  5. ASPIRIN [Suspect]
  6. DIOVAN [Suspect]

REACTIONS (3)
  - EYE SWELLING [None]
  - HYPOAESTHESIA ORAL [None]
  - LIP SWELLING [None]
